FAERS Safety Report 14752782 (Version 2)
Quarter: 2018Q2

REPORT INFORMATION
  Report Type: Report from Study
  Country: CA (occurrence: CA)
  Receive Date: 20180412
  Receipt Date: 20180504
  Transmission Date: 20180711
  Serious: Yes (Hospitalization)
  Sender: FDA-Public Use
  Company Number: CA-JNJFOC-20180323836

PATIENT
  Age: 8 Year
  Sex: Male
  Weight: 48.2 kg

DRUGS (4)
  1. CALCIUM CARBONATE. [Concomitant]
     Active Substance: CALCIUM CARBONATE
     Indication: BLOOD CALCIUM DECREASED
     Route: 048
  2. CHOLECALCIFEROL [Concomitant]
     Active Substance: CHOLECALCIFEROL
     Route: 048
  3. REMICADE [Suspect]
     Active Substance: INFLIXIMAB
     Indication: CROHN^S DISEASE
     Dosage: STRENGTH = 100 MG
     Route: 042
     Dates: start: 20130724
  4. HYDROCORTISONE VALERATE. [Concomitant]
     Active Substance: HYDROCORTISONE VALERATE
     Indication: ECZEMA
     Route: 061

REACTIONS (9)
  - Influenza [Recovered/Resolved]
  - Body temperature increased [Recovered/Resolved]
  - Ear pain [Unknown]
  - Tonsillitis [Recovering/Resolving]
  - Off label use [Unknown]
  - Infusion related reaction [Unknown]
  - Oropharyngeal pain [Unknown]
  - Peritonsillar abscess [Recovered/Resolved]
  - Product use issue [Unknown]

NARRATIVE: CASE EVENT DATE: 20130724
